FAERS Safety Report 7620806-5 (Version None)
Quarter: 2011Q3

REPORT INFORMATION
  Report Type: 
  Country: None (occurrence: None)
  Receive Date: 20110719
  Receipt Date: 20110708
  Transmission Date: 20111222
  Serious: Yes (Other)
  Sender: FDA-Public Use
  Company Number: PHHY2011US63540

PATIENT

DRUGS (6)
  1. REMIFENTANIL [Suspect]
     Route: 064
  2. PHENYLEPHRINE HCL [Suspect]
     Route: 064
  3. BUPIVACAINE HCL [Suspect]
     Route: 064
  4. FENTANYL-100 [Suspect]
     Route: 064
  5. MORPHINE [Suspect]
     Route: 064
  6. NITROGLYCERIN [Suspect]
     Route: 064

REACTIONS (6)
  - GOITRE CONGENITAL [None]
  - PREMATURE BABY [None]
  - MATERNAL EXPOSURE DURING PREGNANCY [None]
  - UPPER AIRWAY OBSTRUCTION [None]
  - APGAR SCORE ABNORMAL [None]
  - CAESAREAN SECTION [None]
